FAERS Safety Report 25044063 (Version 1)
Quarter: 2025Q1

REPORT INFORMATION
  Report Type: Spontaneous
  Country: US (occurrence: US)
  Receive Date: 20250306
  Receipt Date: 20250306
  Transmission Date: 20250409
  Serious: No
  Sender: AZURITY PHARMACEUTICALS
  Company Number: US-AZURITY PHARMACEUTICALS, INC.-AZR202410-000857

PATIENT
  Age: 71 Year
  Sex: Male

DRUGS (1)
  1. SKLICE [Suspect]
     Active Substance: IVERMECTIN
     Indication: Acne
     Route: 061

REACTIONS (2)
  - Drug effective for unapproved indication [Unknown]
  - Product packaging difficult to open [Unknown]
